FAERS Safety Report 16628029 (Version 1)
Quarter: 2019Q3

REPORT INFORMATION
  Report Type: Other
  Country: CZ (occurrence: CZ)
  Receive Date: 20190724
  Receipt Date: 20190724
  Transmission Date: 20191004
  Serious: Yes (Life-Threatening, Hospitalization)
  Sender: FDA-Public Use
  Company Number: CZ-GE HEALTHCARE LIFE SCIENCES-2019CSU003720

PATIENT

DRUGS (2)
  1. OMNIPAQUE [Suspect]
     Active Substance: IOHEXOL
     Indication: INTERVERTEBRAL DISC DISORDER
     Dosage: 300 MG, SINGLE
     Route: 008
     Dates: start: 20190708, end: 20190708
  2. MESOCAIN 1% (TRIMECAINE HYDROCHLORIDE) [Suspect]
     Active Substance: TRIMECAINE
     Indication: INTERVERTEBRAL DISC DISORDER
     Dosage: 100 MG, UNK
     Route: 008
     Dates: start: 20190708, end: 20190708

REACTIONS (7)
  - Flushing [Recovered/Resolved]
  - Circulatory collapse [Recovered/Resolved]
  - Loss of consciousness [Recovered/Resolved]
  - Paraesthesia [Recovered/Resolved]
  - Hypotension [Recovered/Resolved]
  - Paraesthesia oral [Recovered/Resolved]
  - Hypersensitivity [Recovered/Resolved]

NARRATIVE: CASE EVENT DATE: 20190708
